FAERS Safety Report 11081965 (Version 1)
Quarter: 2015Q2

REPORT INFORMATION
  Report Type: Spontaneous
  Country: DE (occurrence: DE)
  Receive Date: 20150501
  Receipt Date: 20150501
  Transmission Date: 20150821
  Serious: Yes (Other)
  Sender: FDA-Public Use
  Company Number: DE-009507513-1504DEU023840

PATIENT
  Age: 31 Year
  Sex: Female
  Weight: 58 kg

DRUGS (9)
  1. REMERGIL [Suspect]
     Active Substance: MIRTAZAPINE
     Dosage: 60 UNK, UNK
     Route: 048
     Dates: start: 20140216, end: 20140815
  2. REMERGIL [Suspect]
     Active Substance: MIRTAZAPINE
     Indication: DEPRESSION
     Dosage: UNK
     Route: 048
     Dates: start: 20140203, end: 20140215
  3. SEROQUEL [Concomitant]
     Active Substance: QUETIAPINE FUMARATE
     Dosage: 125 MG, QD
     Route: 048
     Dates: start: 20140416
  4. SEROQUEL [Concomitant]
     Active Substance: QUETIAPINE FUMARATE
     Indication: DEPRESSION
     Dosage: 175 MG, QD
     Route: 048
     Dates: start: 20140217
  5. SEROQUEL [Concomitant]
     Active Substance: QUETIAPINE FUMARATE
     Dosage: UNK
     Route: 048
     Dates: end: 20140730
  6. REMERGIL [Suspect]
     Active Substance: MIRTAZAPINE
     Dosage: 30 UNK, UNK
     Route: 048
     Dates: end: 20141001
  7. REMERGIL [Suspect]
     Active Substance: MIRTAZAPINE
     Dosage: 45 MG, QD
     Route: 048
     Dates: start: 20140816, end: 20140822
  8. TAVOR [Concomitant]
     Active Substance: LORAZEPAM
     Indication: DEPRESSION
     Dosage: 4 MG/D WITH SLOW DOSAGE REDUCTION
     Route: 048
     Dates: start: 20140203, end: 20140505
  9. FOLINA (FOLIC ACID) [Concomitant]
     Active Substance: FOLIC ACID
     Indication: PROPHYLAXIS OF NEURAL TUBE DEFECT
     Dosage: 0.4 MG, BID (BIS)
     Route: 048
     Dates: start: 20140103, end: 20141001

REACTIONS (1)
  - Ileus paralytic [Recovered/Resolved]

NARRATIVE: CASE EVENT DATE: 20140815
